FAERS Safety Report 21218744 (Version 1)
Quarter: 2022Q3

REPORT INFORMATION
  Report Type: Spontaneous
  Country: US (occurrence: None)
  Receive Date: 20220816
  Receipt Date: 20220816
  Transmission Date: 20221027
  Serious: Yes (Death)
  Sender: FDA-Public Use
  Company Number: None

PATIENT
  Age: 34 Year
  Sex: Male

DRUGS (1)
  1. IVERMECTIN [Suspect]
     Active Substance: IVERMECTIN
     Indication: COVID-19 prophylaxis
     Route: 048
     Dates: start: 20220714, end: 20220716

REACTIONS (3)
  - Acute respiratory distress syndrome [None]
  - Acute kidney injury [None]
  - Seizure [None]

NARRATIVE: CASE EVENT DATE: 20220716
